FAERS Safety Report 5927652-9 (Version None)
Quarter: 2008Q4

REPORT INFORMATION
  Report Type: 
  Country: None (occurrence: None)
  Receive Date: 20081023
  Receipt Date: 20081016
  Transmission Date: 20090506
  Serious: Yes (Hospitalization)
  Sender: FDA-Public Use
  Company Number: JP-BAYER-200812447BYL

PATIENT
  Age: 64 Year
  Sex: Male

DRUGS (2)
  1. NEXAVAR [Suspect]
     Indication: RENAL CELL CARCINOMA
     Dosage: AS USED: 400 MG  UNIT DOSE: 200 MG
     Route: 048
     Dates: start: 20080825, end: 20080921
  2. NEXAVAR [Suspect]
     Dosage: AS USED: 600 MG  UNIT DOSE: 200 MG
     Route: 048
     Dates: start: 20080922, end: 20081005

REACTIONS (1)
  - LIVER DISORDER [None]
